FAERS Safety Report 20277758 (Version 2)
Quarter: 2022Q1

REPORT INFORMATION
  Report Type: Spontaneous
  Country: ES (occurrence: ES)
  Receive Date: 20220103
  Receipt Date: 20220109
  Transmission Date: 20220423
  Serious: Yes (Hospitalization, Other)
  Sender: FDA-Public Use
  Company Number: ES-AEMPS-1070857

PATIENT
  Age: 75 Year
  Sex: Male

DRUGS (1)
  1. METFORMIN [Suspect]
     Active Substance: METFORMIN HYDROCHLORIDE
     Indication: Diabetes mellitus
     Dosage: UNK
     Route: 065
     Dates: start: 2018, end: 20201231

REACTIONS (2)
  - Lactic acidosis [Recovered/Resolved]
  - Creatinine renal clearance decreased [Recovered/Resolved]

NARRATIVE: CASE EVENT DATE: 20191231
